FAERS Safety Report 18584467 (Version 1)
Quarter: 2020Q4

REPORT INFORMATION
  Report Type: Spontaneous
  Country: GB (occurrence: GB)
  Receive Date: 20201207
  Receipt Date: 20201207
  Transmission Date: 20210114
  Serious: Yes (Hospitalization)
  Sender: FDA-Public Use
  Company Number: GB-ACCORD-209623

PATIENT
  Age: 65 Year
  Sex: Female
  Weight: 86 kg

DRUGS (12)
  1. CARBOCISTEINE [Suspect]
     Active Substance: CARBOCYSTEINE
     Indication: CHRONIC OBSTRUCTIVE PULMONARY DISEASE
     Route: 048
  2. CHOLINE THEOPHYLLINATE/THEOPHYLLINE/THEOPHYLLINE CALCIUM AMINOACET/THEOPHYLLINE MONOETHANOLAMINE/THE [Suspect]
     Active Substance: OXTRIPHYLLINE
     Indication: PRODUCT USED FOR UNKNOWN INDICATION
     Dosage: WITHDRAWN FOR 48 HOURS, RESTARTED AT 200MG TWICE DAILY.
     Route: 048
     Dates: end: 20201106
  3. SALBUTAMOL [Suspect]
     Active Substance: ALBUTEROL
     Indication: ASTHMA
     Route: 055
  4. TOLTERODINE/TOLTERODINE L-TARTRATE [Suspect]
     Active Substance: TOLTERODINE TARTRATE
     Indication: MICTURITION URGENCY
     Dosage: EVERY MORNING
     Route: 048
  5. FOSTAIR [Suspect]
     Active Substance: BECLOMETHASONE\FORMOTEROL
     Indication: ASTHMA
     Dosage: PUFFS
     Route: 055
  6. CHOLINE THEOPHYLLINATE/THEOPHYLLINE/THEOPHYLLINE CALCIUM AMINOACET/THEOPHYLLINE MONOETHANOLAMINE/THE [Suspect]
     Active Substance: OXTRIPHYLLINE
     Indication: CHRONIC OBSTRUCTIVE PULMONARY DISEASE
     Dosage: TO BE CONTINUED FOR 4 DAYS BEFORE THEOPHYLLINE LEVELS ARE TAKEN AGAIN
     Route: 048
     Dates: start: 20201108
  7. FOLIC ACID. [Suspect]
     Active Substance: FOLIC ACID
     Indication: PRODUCT USED FOR UNKNOWN INDICATION
     Route: 048
  8. VANCOMYCIN [Suspect]
     Active Substance: VANCOMYCIN
     Indication: CLOSTRIDIUM DIFFICILE INFECTION
     Route: 048
     Dates: start: 20200929, end: 20201013
  9. CYCLIZINE [Suspect]
     Active Substance: CYCLIZINE
     Indication: NAUSEA
     Dosage: THREE TIMES A DAY.
     Route: 048
  10. SALBUTAMOL [Suspect]
     Active Substance: ALBUTEROL
     Indication: ASTHMA
     Dosage: AND AS REQUIRED.
     Route: 055
  11. MONTELUKAST [Suspect]
     Active Substance: MONTELUKAST SODIUM
     Indication: ASTHMA
     Dosage: AT NIGHT
     Route: 048
  12. TIOTROPIUM/TIOTROPIUM BROMIDE [Suspect]
     Active Substance: TIOTROPIUM BROMIDE
     Indication: CHRONIC OBSTRUCTIVE PULMONARY DISEASE
     Dosage: EVERY MORNING
     Route: 055

REACTIONS (5)
  - Sinus tachycardia [Recovered/Resolved]
  - Dehydration [Unknown]
  - Diarrhoea [Recovering/Resolving]
  - Vomiting [Recovering/Resolving]
  - Palpitations [Unknown]

NARRATIVE: CASE EVENT DATE: 20200929
